FAERS Safety Report 19511089 (Version 1)
Quarter: 2021Q3

REPORT INFORMATION
  Report Type: Spontaneous
  Country: CN (occurrence: CN)
  Receive Date: 20210709
  Receipt Date: 20210709
  Transmission Date: 20211014
  Serious: Yes (Death, Hospitalization)
  Sender: FDA-Public Use
  Company Number: CN-JNJFOC-20210700087

PATIENT
  Age: 51 Year
  Sex: Female

DRUGS (7)
  1. INVEGA [Suspect]
     Active Substance: PALIPERIDONE
     Dosage: (1 TABLET OF INVEGA 3 MG AND 1 TABLET OF INVEGA 6 MG)
     Route: 048
  2. AMISULPRIDE [Concomitant]
     Active Substance: AMISULPRIDE
     Route: 048
  3. INVEGA SUSTENNA [Suspect]
     Active Substance: PALIPERIDONE PALMITATE
     Dosage: SECOND INJECTION AND THE THIRD INJECTION OF INVEGA SUSTENNA INJECTION 150 MG
     Route: 030
     Dates: start: 20210625
  4. INVEGA SUSTENNA [Suspect]
     Active Substance: PALIPERIDONE PALMITATE
     Indication: SCHIZOPHRENIA
     Route: 030
  5. INVEGA [Suspect]
     Active Substance: PALIPERIDONE
     Indication: SCHIZOPHRENIA
     Dosage: 3 MG*7
     Route: 048
  6. INVEGA SUSTENNA [Suspect]
     Active Substance: PALIPERIDONE PALMITATE
  7. INVEGA [Suspect]
     Active Substance: PALIPERIDONE
     Dosage: 6 MG*7
     Route: 048

REACTIONS (4)
  - Sudden death [Fatal]
  - Hospitalisation [Unknown]
  - Product administration error [Unknown]
  - Off label use [Unknown]

NARRATIVE: CASE EVENT DATE: 20210625
